FAERS Safety Report 23354726 (Version 1)
Quarter: 2024Q1

REPORT INFORMATION
  Report Type: Report from Study
  Country: US (occurrence: US)
  Receive Date: 20240101
  Receipt Date: 20240101
  Transmission Date: 20240409
  Serious: Yes (Other)
  Sender: FDA-Public Use
  Company Number: US-002147023-NVSC2023US275891

PATIENT
  Sex: Female

DRUGS (1)
  1. TAFINLAR [Suspect]
     Active Substance: DABRAFENIB MESYLATE
     Indication: Cardiac dysfunction
     Dosage: 75 MG, BID
     Route: 048

REACTIONS (2)
  - Cardiac dysfunction [Unknown]
  - Product use in unapproved indication [Unknown]
